FAERS Safety Report 15843767 (Version 2)
Quarter: 2019Q1

REPORT INFORMATION
  Report Type: Report from Study
  Country: US (occurrence: US)
  Receive Date: 20190118
  Receipt Date: 20190307
  Transmission Date: 20190417
  Serious: Yes (Death, Other)
  Sender: FDA-Public Use
  Company Number: US-REGENERON PHARMACEUTICALS, INC.-2019-11422

PATIENT

DRUGS (4)
  1. EYLEA [Suspect]
     Active Substance: AFLIBERCEPT
     Indication: DIABETIC RETINAL OEDEMA
     Dosage: UNK
     Dates: start: 20160122, end: 20160122
  2. EYLEA [Suspect]
     Active Substance: AFLIBERCEPT
     Indication: DIABETIC RETINOPATHY
     Dosage: UNK
     Dates: start: 20151221, end: 20160411
  3. EYLEA [Suspect]
     Active Substance: AFLIBERCEPT
     Dosage: UNK
     Dates: start: 20160301, end: 20160301
  4. EYLEA [Suspect]
     Active Substance: AFLIBERCEPT
     Dosage: UNK
     Dates: start: 20160411, end: 20160411

REACTIONS (1)
  - Death [Fatal]

NARRATIVE: CASE EVENT DATE: 20180621
